FAERS Safety Report 7602544-8 (Version None)
Quarter: 2011Q3

REPORT INFORMATION
  Report Type: 
  Country: None (occurrence: None)
  Receive Date: 20110701
  Receipt Date: 20100928
  Transmission Date: 20111222
  Serious: Yes (Other)
  Sender: FDA-Public Use
  Company Number: SIM_00009_2011

PATIENT
  Sex: Male

DRUGS (1)
  1. ALLERGY EYE RELIEF (HOMEOPATHIC) [Suspect]
     Indication: EYE IRRITATION
     Dosage: (DF OPHTHALMIC)
     Route: 047

REACTIONS (3)
  - EXPIRED DRUG ADMINISTERED [None]
  - EYE HAEMORRHAGE [None]
  - PRODUCT DEPOSIT [None]
